FAERS Safety Report 6505062-3 (Version None)
Quarter: 2009Q4

REPORT INFORMATION
  Report Type: 
  Country: None (occurrence: None)
  Receive Date: 20091218
  Receipt Date: 20091211
  Transmission Date: 20100525
  Serious: Yes (Hospitalization, Other)
  Sender: FDA-Public Use
  Company Number: US-JNJFOC-20091204170

PATIENT
  Sex: Female
  Weight: 58.97 kg

DRUGS (6)
  1. DURAGESIC-100 [Suspect]
     Indication: NECK PAIN
     Route: 062
  2. DURAGESIC-100 [Suspect]
     Indication: BACK PAIN
     Route: 062
  3. DURAGESIC-100 [Suspect]
     Route: 062
  4. DURAGESIC-100 [Suspect]
     Route: 062
  5. ZANAFLEX [Concomitant]
     Indication: MYALGIA
     Route: 048
  6. PERCOCET [Concomitant]
     Indication: PAIN
     Route: 048

REACTIONS (3)
  - INADEQUATE ANALGESIA [None]
  - MIGRAINE [None]
  - PRODUCT QUALITY ISSUE [None]
